FAERS Safety Report 10724728 (Version 1)
Quarter: 2015Q1

REPORT INFORMATION
  Report Type: Spontaneous
  Country: AU (occurrence: AU)
  Receive Date: 20150120
  Receipt Date: 20150120
  Transmission Date: 20150721
  Serious: Yes (Hospitalization)
  Sender: FDA-Public Use
  Company Number: AU-JNJFOC-20150104630

PATIENT
  Age: 44 Year
  Sex: Male

DRUGS (1)
  1. STELARA [Suspect]
     Active Substance: USTEKINUMAB
     Indication: PRODUCT USED FOR UNKNOWN INDICATION
     Route: 058
     Dates: end: 20140613

REACTIONS (4)
  - Pneumonia [Unknown]
  - Burkholderia pseudomallei infection [Unknown]
  - Brain abscess [Unknown]
  - Mood altered [Unknown]

NARRATIVE: CASE EVENT DATE: 201407
